FAERS Safety Report 8581257-2 (Version None)
Quarter: 2012Q3

REPORT INFORMATION
  Report Type: 
  Country: None (occurrence: None)
  Receive Date: 20120809
  Receipt Date: 20120806
  Transmission Date: 20120928
  Serious: Yes (Life-Threatening, Hospitalization)
  Sender: FDA-Public Use
  Company Number: PHHY2012JP065692

PATIENT
  Age: 31 Year
  Sex: Female

DRUGS (2)
  1. LEVOTOMIN [Suspect]
     Dosage: 300 MG, DAILY
     Route: 048
     Dates: start: 20090309
  2. LOPRESSOR [Suspect]
     Indication: SUICIDE ATTEMPT
     Dosage: 5040 MG, DAILY
     Route: 048
     Dates: start: 20090309

REACTIONS (6)
  - CARDIAC ARREST [None]
  - BLOOD PRESSURE DECREASED [None]
  - PUPILLARY REFLEX IMPAIRED [None]
  - SUICIDE ATTEMPT [None]
  - LOSS OF CONSCIOUSNESS [None]
  - OVERDOSE [None]
